FAERS Safety Report 10099763 (Version 1)
Quarter: 2014Q2

REPORT INFORMATION
  Report Type: Spontaneous
  Country: US (occurrence: None)
  Receive Date: 20140422
  Receipt Date: 20140422
  Transmission Date: 20141212
  Serious: Yes (Disabling)
  Sender: FDA-Public Use
  Company Number: None

PATIENT
  Age: 65 Year
  Sex: Female
  Weight: 95.71 kg

DRUGS (4)
  1. FOSINOPRIL NA [Suspect]
     Indication: HYPERTENSION
     Dosage: MOUTH, 90 TABLETS, 1 PILL DAILY
     Dates: start: 20140203, end: 20140327
  2. FUROSEMIDE [Concomitant]
  3. LOVATADINE [Concomitant]
  4. FOSINOPRIL [Concomitant]

REACTIONS (7)
  - Hypoaesthesia [None]
  - Cough [None]
  - Weight decreased [None]
  - Dry mouth [None]
  - Swelling face [None]
  - Skin discolouration [None]
  - Product substitution issue [None]
